FAERS Safety Report 23799185 (Version 1)
Quarter: 2024Q2

REPORT INFORMATION
  Report Type: Spontaneous
  Country: US (occurrence: US)
  Receive Date: 20240430
  Receipt Date: 20240430
  Transmission Date: 20240716
  Serious: No
  Sender: FDA-Public Use
  Company Number: US-SANDOZ-SDZ2024US044094

PATIENT
  Sex: Male

DRUGS (2)
  1. HYRIMOZ [Suspect]
     Active Substance: ADALIMUMAB-ADAZ
     Dosage: UNK (1 PEN - PATIENT UNSURE OF DOSAGE WHILE REPORTING.)
     Route: 058
     Dates: start: 20240411
  2. HYRIMOZ [Suspect]
     Active Substance: ADALIMUMAB-ADAZ
     Indication: Product used for unknown indication
     Dosage: UNK (ONCE EVERY TWO WEEKS)
     Route: 058
     Dates: start: 20240411

REACTIONS (2)
  - Dyskinesia [Not Recovered/Not Resolved]
  - Product dose omission issue [Unknown]
